FAERS Safety Report 25880725 (Version 1)
Quarter: 2025Q4

REPORT INFORMATION
  Report Type: Spontaneous
  Country: CN (occurrence: CN)
  Receive Date: 20251004
  Receipt Date: 20251004
  Transmission Date: 20260118
  Serious: Yes (Life-Threatening, Hospitalization, Other)
  Sender: MICRO LABS LIMITED
  Company Number: CN-MICRO LABS LIMITED-ML2025-05028

PATIENT
  Age: 62 Year
  Sex: Female
  Weight: 45 kg

DRUGS (3)
  1. MIDAZOLAM [Suspect]
     Active Substance: MIDAZOLAM
     Indication: Sedation
     Route: 042
  2. FENTANYL [Suspect]
     Active Substance: FENTANYL
     Indication: Analgesic therapy
     Route: 042
  3. LIDOCAINE [Concomitant]
     Active Substance: LIDOCAINE
     Indication: Product used for unknown indication

REACTIONS (8)
  - Anterograde amnesia [Recovered/Resolved]
  - Disorientation [Recovered/Resolved]
  - Sensory disturbance [Recovered/Resolved]
  - Respiratory depression [Recovered/Resolved]
  - Retrograde amnesia [Recovered/Resolved]
  - Nausea [Recovered/Resolved]
  - Retching [Recovered/Resolved]
  - Drug interaction [Recovered/Resolved]
